FAERS Safety Report 6034982-1 (Version None)
Quarter: 2009Q1

REPORT INFORMATION
  Report Type: 
  Country: None (occurrence: None)
  Receive Date: 20090108
  Receipt Date: 20090108
  Transmission Date: 20090719
  Serious: Yes (Other)
  Sender: FDA-Public Use
  Company Number: None

PATIENT
  Sex: Male
  Weight: 73.0291 kg

DRUGS (2)
  1. DEPAKOTE [Suspect]
     Indication: CONVULSION
     Dosage: 120 3 TIMES A DAY INTRACEREBRAL  (DURATION: LIFETIME)
     Route: 018
  2. DEPAKOTE [Suspect]
     Indication: HEAD INJURY
     Dosage: 120 3 TIMES A DAY INTRACEREBRAL  (DURATION: LIFETIME)
     Route: 018

REACTIONS (2)
  - CONVULSION [None]
  - THERAPEUTIC RESPONSE UNEXPECTED WITH DRUG SUBSTITUTION [None]
